FAERS Safety Report 6681004-5 (Version None)
Quarter: 2010Q2

REPORT INFORMATION
  Report Type: 
  Country: None (occurrence: None)
  Receive Date: 20100414
  Receipt Date: 20100405
  Transmission Date: 20101027
  Serious: Yes (Hospitalization)
  Sender: FDA-Public Use
  Company Number: RU-GENENTECH-297156

PATIENT
  Sex: Female
  Weight: 56 kg

DRUGS (3)
  1. RITUXIMAB [Suspect]
     Indication: RHEUMATOID ARTHRITIS
     Dosage: 1000 MG, Q2W
     Route: 042
     Dates: start: 20090514
  2. CHLORAMBUCIL [Concomitant]
     Indication: DRUG USE FOR UNKNOWN INDICATION
     Dosage: UNK
     Route: 048
     Dates: start: 20080601, end: 20100113
  3. PREDNISOLONE [Concomitant]
     Indication: RHEUMATOID ARTHRITIS
     Dosage: UNK
     Route: 048
     Dates: start: 20081130

REACTIONS (7)
  - ANAEMIA [None]
  - DYSFUNCTIONAL UTERINE BLEEDING [None]
  - INFLUENZA [None]
  - NEPHRITIC SYNDROME [None]
  - OVARIAN CYST [None]
  - PYELONEPHRITIS CHRONIC [None]
  - STAPHYLOCOCCAL SEPSIS [None]
